FAERS Safety Report 6781863-1 (Version None)
Quarter: 2010Q2

REPORT INFORMATION
  Report Type: 
  Country: None (occurrence: None)
  Receive Date: 20100621
  Receipt Date: 20100618
  Transmission Date: 20101027
  Serious: Yes (Death)
  Sender: FDA-Public Use
  Company Number: PHHY2010US28556

PATIENT
  Sex: Female
  Weight: 58.957 kg

DRUGS (1)
  1. EXJADE [Suspect]
     Indication: IRON OVERLOAD
     Dosage: 625 MG DAILY
     Route: 048
     Dates: start: 20071019, end: 20091030

REACTIONS (1)
  - DEATH [None]
